FAERS Safety Report 9772576 (Version 4)
Quarter: 2014Q1

REPORT INFORMATION
  Report Type: Report from Study
  Country: IE (occurrence: IE)
  Receive Date: 20131219
  Receipt Date: 20140213
  Transmission Date: 20141002
  Serious: Yes (Hospitalization)
  Sender: FDA-Public Use
  Company Number: IE-ABBVIE-13P-229-1169335-00

PATIENT
  Age: 44 Year
  Sex: Female

DRUGS (5)
  1. HUMIRA [Suspect]
     Indication: CROHN^S DISEASE
     Route: 058
     Dates: start: 2011
  2. HUMIRA [Suspect]
     Route: 058
  3. HUMIRA [Suspect]
     Route: 058
     Dates: end: 20131120
  4. SALAZOPYRIN [Concomitant]
     Indication: CROHN^S DISEASE
     Route: 048
     Dates: start: 20131104
  5. 6-MP [Concomitant]
     Indication: PRODUCT USED FOR UNKNOWN INDICATION
     Route: 048
     Dates: start: 20131120

REACTIONS (3)
  - Lupus-like syndrome [Recovering/Resolving]
  - Arthralgia [Recovering/Resolving]
  - Antinuclear antibody positive [Recovering/Resolving]
